FAERS Safety Report 6358212-6 (Version None)
Quarter: 2009Q3

REPORT INFORMATION
  Report Type: 
  Country: None (occurrence: None)
  Receive Date: 20090916
  Receipt Date: 20090914
  Transmission Date: 20100115
  Serious: Yes (Hospitalization)
  Sender: FDA-Public Use
  Company Number: US-ELI_LILLY_AND_COMPANY-US200909003069

PATIENT
  Sex: Male

DRUGS (3)
  1. HUMULIN R [Suspect]
  2. HUMULIN R [Suspect]
  3. LANTUS [Concomitant]

REACTIONS (6)
  - ASTHENIA [None]
  - BLOOD GLUCOSE INCREASED [None]
  - BRONCHOSPASM [None]
  - DEMENTIA [None]
  - MEDICATION ERROR [None]
  - PNEUMONIA [None]
